FAERS Safety Report 13261415 (Version 1)
Quarter: 2017Q1

REPORT INFORMATION
  Report Type: Report from Study
  Country: GB (occurrence: GB)
  Receive Date: 20170222
  Receipt Date: 20170222
  Transmission Date: 20170428
  Serious: Yes (Other)
  Sender: FDA-Public Use
  Company Number: GB-ENDO PHARMACEUTICALS INC-2017-000882

PATIENT

DRUGS (1)
  1. AVEED [Suspect]
     Active Substance: TESTOSTERONE UNDECANOATE
     Indication: PRODUCT USED FOR UNKNOWN INDICATION
     Dosage: UNK UNKNOWN, UNKNOWN
     Route: 065

REACTIONS (11)
  - Frustration tolerance decreased [Unknown]
  - Irritability [Unknown]
  - Crying [Unknown]
  - Muscle hypertrophy [Unknown]
  - Sluggishness [Unknown]
  - Emotional disorder [Unknown]
  - Increased appetite [Unknown]
  - Hypertrichosis [Unknown]
  - Energy increased [Unknown]
  - Hyperhidrosis [Unknown]
  - Weight increased [Unknown]
